FAERS Safety Report 24467882 (Version 1)
Quarter: 2024Q4

REPORT INFORMATION
  Report Type: Spontaneous
  Country: US (occurrence: US)
  Receive Date: 20241018
  Receipt Date: 20241018
  Transmission Date: 20250115
  Serious: No
  Sender: Phathom Pharmaceuticals
  Company Number: US-PHATHOM PHARMACEUTICALS INC.-2024PHT00724

PATIENT
  Age: 57 Year
  Sex: Male

DRUGS (2)
  1. VOQUEZNA [Suspect]
     Active Substance: VONOPRAZAN FUMARATE
     Indication: Gastrooesophageal reflux disease
     Dosage: 20 MG, 1X/DAY
     Route: 048
     Dates: start: 20240710, end: 20240731
  2. VOQUEZNA [Suspect]
     Active Substance: VONOPRAZAN FUMARATE
     Dosage: 20 MG, EVERY OTHER DAY
     Route: 048
     Dates: start: 20240801, end: 20240808

REACTIONS (7)
  - Feeling abnormal [Unknown]
  - Aura [Unknown]
  - Orthostatic hypotension [Unknown]
  - Syncope [Unknown]
  - Tachycardia [Unknown]
  - Dizziness [Unknown]
  - Off label use [Recovered/Resolved]

NARRATIVE: CASE EVENT DATE: 20240801
